FAERS Safety Report 5828027-3 (Version None)
Quarter: 2008Q3

REPORT INFORMATION
  Report Type: 
  Country: None (occurrence: None)
  Receive Date: 20080730
  Receipt Date: 20070713
  Transmission Date: 20090109
  Serious: No
  Sender: FDA-Public Use
  Company Number: A0663988A

PATIENT
  Sex: Female

DRUGS (4)
  1. ZANTAC [Suspect]
     Dosage: 150MG TWICE PER DAY
     Route: 048
     Dates: start: 20070501
  2. THYROID MEDICATION [Concomitant]
  3. TRIAMTERENE [Concomitant]
  4. BENADRYL [Concomitant]

REACTIONS (4)
  - FLATULENCE [None]
  - NAUSEA [None]
  - SOMNOLENCE [None]
  - STOMACH DISCOMFORT [None]
